FAERS Safety Report 8819396 (Version 3)
Quarter: 2013Q1

REPORT INFORMATION
  Report Type: Spontaneous
  Country: US (occurrence: None)
  Receive Date: 20121003
  Receipt Date: 20130219
  Transmission Date: 20140127
  Serious: Yes (Death, Hospitalization, Other)
  Sender: FDA-Public Use
  Company Number: ACO_32227_2012

PATIENT
  Age: 64 Year
  Sex: Male

DRUGS (2)
  1. AMPYRA [Suspect]
     Indication: GAIT DISTURBANCE
     Route: 048
     Dates: start: 2010, end: 20120801
  2. CYTOXAN [Suspect]
     Dates: end: 2010

REACTIONS (19)
  - Constipation [None]
  - Urinary tract infection [None]
  - Death [None]
  - Metastatic renal cell carcinoma [None]
  - Respiratory failure [None]
  - Pulmonary hilum mass [None]
  - Pneumonia [None]
  - Pleural effusion [None]
  - Renal vein thrombosis [None]
  - Rib fracture [None]
  - Lymphadenopathy [None]
  - Oedema peripheral [None]
  - Cough [None]
  - Sleep disorder [None]
  - Hypophagia [None]
  - Abdominal pain [None]
  - Vomiting [None]
  - Diarrhoea [None]
  - Nausea [None]
